FAERS Safety Report 14165898 (Version 1)
Quarter: 2017Q4

REPORT INFORMATION
  Report Type: Spontaneous
  Country: CA (occurrence: CA)
  Receive Date: 20171107
  Receipt Date: 20171107
  Transmission Date: 20180321
  Serious: Yes (Other)
  Sender: FDA-Public Use
  Company Number: CA-SA-2017SA210487

PATIENT
  Age: 60 Year
  Sex: Female

DRUGS (13)
  1. CYCLOBENZAPRINE HYDROCHLORIDE. [Suspect]
     Active Substance: CYCLOBENZAPRINE HYDROCHLORIDE
     Route: 065
  2. METHOTREXATE SODIUM. [Suspect]
     Active Substance: METHOTREXATE SODIUM
     Indication: RHEUMATOID ARTHRITIS
     Route: 065
  3. ARAVA [Suspect]
     Active Substance: LEFLUNOMIDE
     Indication: RHEUMATOID ARTHRITIS
     Route: 048
  4. RITUXAN [Suspect]
     Active Substance: RITUXIMAB
     Indication: RHEUMATOID ARTHRITIS
     Dosage: FORM: SOLUTION INTRAVENOUS
     Route: 065
  5. TORADOL [Suspect]
     Active Substance: KETOROLAC TROMETHAMINE
     Route: 065
  6. XALATAN [Suspect]
     Active Substance: LATANOPROST
     Dosage: FORM: SOLUTION OPTHALMIC
     Route: 065
  7. MORPHINE [Concomitant]
     Active Substance: MORPHINE
  8. CELEBREX [Suspect]
     Active Substance: CELECOXIB
     Route: 065
  9. ALPHAGAN P [Suspect]
     Active Substance: BRIMONIDINE TARTRATE
     Indication: GLAUCOMA
     Dosage: FORM: SOLUTION OPTHALMIC
     Route: 065
  10. SALAZOPYRIN [Suspect]
     Active Substance: SULFASALAZINE
     Indication: RHEUMATOID ARTHRITIS
     Route: 065
  11. ASA [Suspect]
     Active Substance: ASPIRIN
     Route: 065
  12. CODEINE [Suspect]
     Active Substance: CODEINE
     Route: 065
  13. DESOXIMETASONE. [Suspect]
     Active Substance: DESOXIMETASONE
     Route: 065

REACTIONS (11)
  - Rheumatoid arthritis [Unknown]
  - Drug intolerance [Unknown]
  - Meniscus injury [Unknown]
  - Hypothyroidism [Unknown]
  - Abdominal pain [Unknown]
  - Erythema [Unknown]
  - Drug ineffective [Unknown]
  - Coma [Unknown]
  - Drug hypersensitivity [Unknown]
  - Anaemia [Unknown]
  - Condition aggravated [Unknown]
